FAERS Safety Report 5677929-X (Version None)
Quarter: 2008Q1

REPORT INFORMATION
  Report Type: 
  Country: None (occurrence: None)
  Receive Date: 20080325
  Receipt Date: 20080311
  Transmission Date: 20080703
  Serious: Yes (Death)
  Sender: FDA-Public Use
  Company Number: US-RB-000100-08

PATIENT
  Sex: Male

DRUGS (2)
  1. SUBOXONE [Suspect]
     Indication: DRUG DEPENDENCE
     Route: 060
     Dates: end: 20080201
  2. EFFEXOR [Concomitant]
     Indication: DEPRESSION
     Dosage: UNKNOWN DOSAGE
     Route: 048
     Dates: end: 20080201

REACTIONS (1)
  - ROAD TRAFFIC ACCIDENT [None]
